FAERS Safety Report 23530866 (Version 1)
Quarter: 2024Q1

REPORT INFORMATION
  Report Type: Spontaneous
  Country: US (occurrence: US)
  Receive Date: 20240216
  Receipt Date: 20240216
  Transmission Date: 20240410
  Serious: No
  Sender: FDA-Public Use
  Company Number: US-BAYER-2024A011598

PATIENT

DRUGS (2)
  1. MIRALAX [Suspect]
     Active Substance: POLYETHYLENE GLYCOL 3350
     Indication: Product used for unknown indication
     Route: 065
  2. BENEFIBER [Concomitant]
     Active Substance: STARCH, WHEAT

REACTIONS (2)
  - Wrong technique in product usage process [Unknown]
  - Therapeutic response unexpected [None]
